FAERS Safety Report 9525064 (Version 1)
Quarter: 2013Q1

REPORT INFORMATION
  Report Type: Spontaneous
  Country: US (occurrence: None)
  Receive Date: 20130314
  Receipt Date: 20130314
  Transmission Date: 20140127
  Serious: No
  Sender: FDA-Public Use
  Company Number: 1301USA010117

PATIENT
  Age: 66 Year
  Sex: Male

DRUGS (3)
  1. VICTRELIS (BOCEPREVIR) CAPSULE, 200MG [Suspect]
     Dosage: ORAL
     Route: 048
  2. PEGASYS (PEGINTERFERON ALFA-2A) INJECTION [Suspect]
  3. RIBAVIRIN(RIBAVIRIN) CAPSULE [Suspect]
     Dosage: ORAL
     Route: 048

REACTIONS (2)
  - Arthralgia [None]
  - Myalgia [None]
